FAERS Safety Report 13340295 (Version 3)
Quarter: 2017Q2

REPORT INFORMATION
  Report Type: Spontaneous
  Country: US (occurrence: US)
  Receive Date: 20170316
  Receipt Date: 20170404
  Transmission Date: 20170830
  Serious: Yes (Hospitalization)
  Sender: FDA-Public Use
  Company Number: US-CONCORDIA PHARMACEUTICALS INC.-GSH201703-001713

PATIENT
  Age: 26 Year
  Sex: Female

DRUGS (12)
  1. PREDNISONE. [Suspect]
     Active Substance: PREDNISONE
     Route: 065
  2. ACYCLOVIR. [Concomitant]
     Active Substance: ACYCLOVIR
     Indication: HERPES SIMPLEX ENCEPHALITIS
  3. PREDNISONE. [Suspect]
     Active Substance: PREDNISONE
     Indication: SYSTEMIC LUPUS ERYTHEMATOSUS
     Route: 065
  4. CEFAZOLIN [Concomitant]
     Active Substance: CEFAZOLIN
  5. ESCITALOPRAM [Concomitant]
     Active Substance: ESCITALOPRAM OXALATE
  6. FAMOTIDINE. [Concomitant]
     Active Substance: FAMOTIDINE
  7. MYCOPHENOLATE MOFETIL. [Concomitant]
     Active Substance: MYCOPHENOLATE MOFETIL
     Indication: SYSTEMIC LUPUS ERYTHEMATOSUS
  8. LEVETIRACETAM. [Concomitant]
     Active Substance: LEVETIRACETAM
     Indication: SEIZURE
     Route: 042
  9. PREDNISONE. [Suspect]
     Active Substance: PREDNISONE
     Route: 065
  10. HYDROXYCHLOROQUINE [Suspect]
     Active Substance: HYDROXYCHLOROQUINE
     Indication: SYSTEMIC LUPUS ERYTHEMATOSUS
     Route: 065
  11. METHYLPREDNISOLONE. [Concomitant]
     Active Substance: METHYLPREDNISOLONE
     Indication: NEUROPSYCHIATRIC LUPUS
     Route: 042
  12. DAPSONE. [Concomitant]
     Active Substance: DAPSONE

REACTIONS (15)
  - Myopathy [Recovered/Resolved]
  - Quadriparesis [Recovered/Resolved]
  - Medication error [Unknown]
  - Muscular weakness [Unknown]
  - Dyspnoea [Unknown]
  - Condition aggravated [Unknown]
  - Blood creatine phosphokinase increased [Unknown]
  - Hypotonia [Unknown]
  - Nuclear magnetic resonance imaging abnormal [Unknown]
  - Fatigue [Unknown]
  - Abdominal pain [Unknown]
  - Nuclear magnetic resonance imaging brain abnormal [Unknown]
  - Myalgia [Unknown]
  - C-reactive protein increased [Unknown]
  - Systemic lupus erythematosus [Recovering/Resolving]
